FAERS Safety Report 24829993 (Version 2)
Quarter: 2025Q1

REPORT INFORMATION
  Report Type: Spontaneous
  Country: FR (occurrence: FR)
  Receive Date: 20250110
  Receipt Date: 20250114
  Transmission Date: 20250409
  Serious: No
  Sender: PFIZER
  Company Number: FR-PFIZER INC-202400270186

PATIENT

DRUGS (1)
  1. ENBREL [Suspect]
     Active Substance: ETANERCEPT

REACTIONS (1)
  - Device deployment issue [Unknown]
